FAERS Safety Report 9687631 (Version 1)
Quarter: 2013Q4

REPORT INFORMATION
  Report Type: Spontaneous
  Country: US (occurrence: None)
  Receive Date: 20131113
  Receipt Date: 20131113
  Transmission Date: 20140711
  Serious: Yes (Other)
  Sender: FDA-Public Use
  Company Number: None

PATIENT
  Sex: Female

DRUGS (1)
  1. BISOPROLOL FUMARATE [Suspect]
     Indication: BLOOD PRESSURE
     Dosage: 1 QD ORAL
     Route: 048
     Dates: start: 20130201, end: 20131015

REACTIONS (3)
  - Heart rate increased [None]
  - Dizziness [None]
  - Heart rate irregular [None]
